FAERS Safety Report 13855843 (Version 4)
Quarter: 2017Q4

REPORT INFORMATION
  Report Type: Report from Study
  Country: CN (occurrence: CN)
  Receive Date: 20170810
  Receipt Date: 20171025
  Transmission Date: 20180320
  Serious: Yes (Hospitalization, Other)
  Sender: FDA-Public Use
  Company Number: CN-BAYER-2017-137053

PATIENT
  Age: 53 Year
  Sex: Male

DRUGS (1)
  1. STIVARGA [Suspect]
     Active Substance: REGORAFENIB
     Indication: COLORECTAL CANCER
     Dosage: 160 MG, QD
     Route: 048
     Dates: start: 20170705

REACTIONS (22)
  - Pneumonia [Unknown]
  - Cough [Unknown]
  - Skin burning sensation [Unknown]
  - Dysphonia [Unknown]
  - Palmar-plantar erythrodysaesthesia syndrome [Recovered/Resolved]
  - Dry throat [Unknown]
  - Pyrexia [Unknown]
  - Erythema [Unknown]
  - Alopecia [Unknown]
  - Rash [None]
  - Haemoptysis [None]
  - Drug ineffective [Unknown]
  - Pain in extremity [Unknown]
  - Glossodynia [Unknown]
  - Pain in extremity [Unknown]
  - Diarrhoea [Unknown]
  - Skin exfoliation [Recovered/Resolved]
  - Proctalgia [Recovered/Resolved]
  - Dry mouth [Unknown]
  - Pharyngeal haemorrhage [Unknown]
  - Skin fissures [Unknown]
  - Fatigue [Unknown]

NARRATIVE: CASE EVENT DATE: 201707
